FAERS Safety Report 8828179 (Version 1)
Quarter: 2012Q4

REPORT INFORMATION
  Report Type: 
  Country: US (occurrence: US)
  Receive Date: 20121005
  Receipt Date: 20121005
  Transmission Date: 20130627
  Serious: No
  Sender: FDA-Public Use
  Company Number: US-PFIZER INC-2012246381

PATIENT
  Age: 48 Year
  Sex: Male
  Weight: 72.56 kg

DRUGS (5)
  1. LYRICA [Suspect]
     Indication: PAIN IN EXTREMITY
     Dosage: 525 mg in morning and 450mg at night.
     Route: 048
     Dates: start: 2012
  2. LYRICA [Suspect]
     Indication: OEDEMA PERIPHERAL
  3. LYRICA [Suspect]
     Indication: HAEMORRHAGE
  4. LISINOPRIL [Concomitant]
     Indication: HYPERTENSION
     Dosage: UNK
  5. CORTISONE [Concomitant]
     Indication: SPINAL CORD INJURY
     Dosage: UNK
     Route: 008

REACTIONS (3)
  - Joint swelling [Not Recovered/Not Resolved]
  - Oedema peripheral [Not Recovered/Not Resolved]
  - Weight increased [Not Recovered/Not Resolved]
